FAERS Safety Report 23714302 (Version 13)
Quarter: 2025Q3

REPORT INFORMATION
  Report Type: Spontaneous
  Country: EU (occurrence: EU)
  Receive Date: 20240405
  Receipt Date: 20250922
  Transmission Date: 20251020
  Serious: Yes (Hospitalization)
  Sender: SANDOZ
  Company Number: EU-ROCHE-2302709

PATIENT
  Age: 52 Year
  Sex: Female
  Weight: 70 kg

DRUGS (46)
  1. CAPECITABINE [Suspect]
     Active Substance: CAPECITABINE
     Indication: HER2 positive breast cancer
     Route: 048
     Dates: start: 20181016
  2. DOCETAXEL [Suspect]
     Active Substance: DOCETAXEL
     Dosage: 1235.25 MG, QW, (411.75 MG (137.25  MG,TIW)
     Route: 042
     Dates: start: 20170130, end: 20170719
  3. DOCETAXEL [Suspect]
     Active Substance: DOCETAXEL
     Indication: Breast cancer
     Dosage: 137.25 MG, TIW (137.25 MG, TIW, (START DATE:30-JAN-2017, 411.75 MG)
     Route: 042
     Dates: start: 20170130, end: 20170719
  4. DOCETAXEL [Suspect]
     Active Substance: DOCETAXEL
     Indication: HER2 positive breast cancer
     Dosage: 137.25 MG, TIW (137.25 MG, TIW, (START DATE:30-JAN-2017, 411.75 MG)
     Route: 042
     Dates: start: 20170130, end: 20170719
  5. DOCETAXEL [Suspect]
     Active Substance: DOCETAXEL
     Dosage: 137.25 MG, TIW (137.25 MG, TIW, (START DATE:30-JAN-2017, 411.75 MG)
     Route: 042
     Dates: start: 20170130, end: 20170719
  6. DOCETAXEL [Suspect]
     Active Substance: DOCETAXEL
     Dosage: 41.75 MG (137.25 MG,TIW)
     Route: 042
     Dates: start: 20170130, end: 20170719
  7. DOCETAXEL [Suspect]
     Active Substance: DOCETAXEL
     Dosage: 411.75 MG (137.25 MG,TIW)
     Route: 042
     Dates: start: 20170130, end: 20170719
  8. DOCETAXEL [Suspect]
     Active Substance: DOCETAXEL
     Dosage: 411.75 MG (137.25 MG,TIW)
     Route: 042
     Dates: start: 20170130, end: 20170719
  9. DOCETAXEL [Suspect]
     Active Substance: DOCETAXEL
     Dosage: 137.25 MG, Q3W, START DATE:30-JAN-2017
     Route: 042
     Dates: end: 20170719
  10. DOCETAXEL [Suspect]
     Active Substance: DOCETAXEL
     Indication: HER2 positive breast cancer
     Dosage: 137.25 MG, TIW, START DATE:30-JAN-2017
     Route: 042
     Dates: end: 20170719
  11. ERIBULIN MESYLATE [Suspect]
     Active Substance: ERIBULIN MESYLATE
     Indication: HER2 positive breast cancer
     Route: 042
     Dates: end: 20191023
  12. FULVESTRANT [Suspect]
     Active Substance: FULVESTRANT
     Indication: HER2 positive breast cancer
     Route: 042
     Dates: end: 20201221
  13. FULVESTRANT [Suspect]
     Active Substance: FULVESTRANT
     Route: 042
     Dates: end: 20201221
  14. FULVESTRANT [Suspect]
     Active Substance: FULVESTRANT
     Route: 042
     Dates: end: 20201221
  15. FULVESTRANT [Suspect]
     Active Substance: FULVESTRANT
     Indication: HER2 positive breast cancer
     Route: 042
     Dates: end: 20201221
  16. HALAVEN [Suspect]
     Active Substance: ERIBULIN MESYLATE
     Route: 042
     Dates: end: 20191023
  17. HALAVEN [Suspect]
     Active Substance: ERIBULIN MESYLATE
     Indication: HER2 positive breast cancer
     Route: 042
     Dates: end: 20191023
  18. HERCEPTIN [Suspect]
     Active Substance: TRASTUZUMAB
     Indication: HER2 positive breast cancer
     Dosage: 560 MG, Q3W (560 MG, TIW, START DATE: 20-FEB-2017,MOST RECENT DOSE PRIOR TO THE EVENT: 20/FEB/2017)
     Route: 042
     Dates: start: 20170130, end: 20170130
  19. HERCEPTIN [Suspect]
     Active Substance: TRASTUZUMAB
     Dosage: 560 MG, Q3W (560 MG, TIW, START DATE: 30-JAN-2017,MOST RECENT DOSE PRIOR TO  THE EVENT: 20/FEB/2017)
     Route: 042
     Dates: start: 20170220, end: 20180521
  20. HERCEPTIN [Suspect]
     Active Substance: TRASTUZUMAB
     Dosage: 560 MG, Q3W (MOST RECENT DOSE PRIOR TO  THE EVENT: 20/FEB/2017)
     Route: 042
     Dates: start: 20170130, end: 20170130
  21. HERCEPTIN [Suspect]
     Active Substance: TRASTUZUMAB
     Dosage: 560 MG, Q3W (MOST RECENT DOSE PRIOR TO  THE EVENT: 20/FEB/2017)
     Route: 042
     Dates: start: 20170220, end: 20180521
  22. KADCYLA [Suspect]
     Active Substance: ADO-TRASTUZUMAB EMTANSINE
     Indication: HER2 positive breast cancer
     Dosage: 3.6 ?G/KG, Q3W(3..6 UG/KG, TIW, START  DATE:13-JUN-2018 )
     Route: 042
     Dates: start: 20180613, end: 20181001
  23. LAPATINIB [Suspect]
     Active Substance: LAPATINIB
     Indication: Breast cancer
     Dosage: 1250 MG, QD, START DATE:16-OCT-2018, (REPORTED WITH BRAND NAME (TYKERB) AND GENERIC NAME LAPATINIB D
     Route: 048
     Dates: end: 20190410
  24. LAPATINIB [Suspect]
     Active Substance: LAPATINIB
     Indication: HER2 positive breast cancer
  25. PALBOCICLIB [Suspect]
     Active Substance: PALBOCICLIB
     Indication: HER2 positive breast cancer
     Route: 048
  26. PALBOCICLIB [Suspect]
     Active Substance: PALBOCICLIB
     Route: 048
  27. PALBOCICLIB [Suspect]
     Active Substance: PALBOCICLIB
     Route: 048
  28. PERJETA [Suspect]
     Active Substance: PERTUZUMAB
     Indication: HER2 positive breast cancer
     Dosage: 2520 MG, QW(840 MG, TIW, START DATE:30- JAN-2017,MOST RECENT DOSE PRIOR TO THE EVENT: 20/FEB/2017 )
     Route: 042
     Dates: start: 20170130, end: 20170130
  29. PERJETA [Suspect]
     Active Substance: PERTUZUMAB
     Dosage: 2840 MG, TIW (MOST RECENT DOSE PRIOR TO  THE EVENT: 20/FEB/2017)
     Route: 042
     Dates: start: 20170130, end: 20170130
  30. PERTUZUMAB [Suspect]
     Active Substance: PERTUZUMAB
     Route: 042
     Dates: end: 20170220
  31. PERTUZUMAB [Suspect]
     Active Substance: PERTUZUMAB
     Indication: HER2 positive breast cancer
     Dosage: 840 MG, TIW START DATE: 30-JAN-2017 (MOST RECENT DOSE PRIOR TO  THE EVENT: 20/FEB/2017)
     Route: 042
     Dates: end: 20170130
  32. TRASTUZUMAB [Suspect]
     Active Substance: TRASTUZUMAB
     Dosage: 1680 MG, QW(560 MG, TIW, START DATE:20- FEB-2017, MOST RECENT DOSE PRIOR TO THE  EVENT: 20/FEB/2017)
     Route: 042
     Dates: end: 20180521
  33. TRASTUZUMAB [Suspect]
     Active Substance: TRASTUZUMAB
     Indication: HER2 positive breast cancer
     Dosage: 560 MG, TIW START DATE 30-JAN-2017 (MOST RECENT DOSE PRIOR TO  THE EVENT: 20/FEB/2017)
     Route: 042
     Dates: end: 20170130
  34. TRASTUZUMAB [Suspect]
     Active Substance: TRASTUZUMAB
     Dosage: 560 MG, TIW START DATE: 20-FEB-2017(MOST RECENT DOSE PRIOR TO  THE EVENT: 20/FEB/2017)
     Route: 042
     Dates: end: 20180521
  35. ADO-TRASTUZUMAB EMTANSINE [Suspect]
     Active Substance: ADO-TRASTUZUMAB EMTANSINE
     Indication: HER2 positive breast cancer
     Dosage: 10.8 ?G/KG, QW(3.6 ?G/KG, TIW, START  DATE:13-JUN-2018)
     Route: 042
     Dates: end: 20181001
  36. TYKERB [Suspect]
     Active Substance: LAPATINIB DITOSYLATE
     Indication: HER2 positive breast cancer
     Dosage: 1250 MG, QD( START DATE:16-OCT-2018, REPORTED WITH BRAND NAME (TYKERB) AND GENERIC NAME LAPATINIB DI
     Route: 048
     Dates: start: 20181016, end: 20190410
  37. VINORELBINE [Suspect]
     Active Substance: VINORELBINE TARTRATE
     Indication: HER2 positive breast cancer
     Route: 042
     Dates: end: 20190730
  38. XELODA [Suspect]
     Active Substance: CAPECITABINE
     Indication: HER2 positive breast cancer
     Route: 048
     Dates: start: 20180116
  39. CITALOPRAM [Concomitant]
     Active Substance: CITALOPRAM
     Indication: Product used for unknown indication
     Route: 065
  40. LEVOTHYROXINE SODIUM [Concomitant]
     Active Substance: LEVOTHYROXINE SODIUM
     Indication: Product used for unknown indication
     Route: 065
     Dates: start: 20161219
  41. LOSARTAN [Concomitant]
     Active Substance: LOSARTAN
     Indication: Product used for unknown indication
     Route: 065
  42. PANTOPRAZOLE [Concomitant]
     Active Substance: PANTOPRAZOLE
     Route: 065
     Dates: start: 20181121
  43. PANTOPRAZOLE [Concomitant]
     Active Substance: PANTOPRAZOLE
     Route: 065
     Dates: start: 20181121
  44. PANTOPRAZOLE [Concomitant]
     Active Substance: PANTOPRAZOLE
     Indication: Product used for unknown indication
     Route: 065
     Dates: start: 20181121
  45. VALSARTAN [Concomitant]
     Active Substance: VALSARTAN
     Indication: Product used for unknown indication
     Route: 065
  46. ZOLEDRONIC ACID [Concomitant]
     Active Substance: ZOLEDRONIC ACID
     Indication: Product used for unknown indication
     Route: 065
     Dates: start: 20191106, end: 20200622

REACTIONS (13)
  - Blood creatinine increased [Recovered/Resolved]
  - Somnolence [Unknown]
  - Renal failure [Unknown]
  - Dizziness [Unknown]
  - Hepatic failure [Unknown]
  - Malaise [Unknown]
  - Blood bilirubin increased [Recovered/Resolved]
  - Jaundice [Unknown]
  - Vomiting [Unknown]
  - Fatigue [Recovered/Resolved]
  - Rash [Recovered/Resolved]
  - Rash [Recovered/Resolved]
  - Rash [Recovered/Resolved]

NARRATIVE: CASE EVENT DATE: 20190109
